FAERS Safety Report 6272674-4 (Version None)
Quarter: 2009Q3

REPORT INFORMATION
  Report Type: 
  Country: None (occurrence: None)
  Receive Date: 20090715
  Receipt Date: 20090715
  Transmission Date: 20100115
  Serious: No
  Sender: FDA-Public Use
  Company Number: None

PATIENT
  Sex: Female

DRUGS (1)
  1. KEPPRA [Suspect]
     Indication: CONVULSION
     Dosage: 250 MG 1 AM, 2PM-

REACTIONS (2)
  - ILL-DEFINED DISORDER [None]
  - PRODUCT SUBSTITUTION ISSUE [None]
